FAERS Safety Report 7657535-8 (Version None)
Quarter: 2011Q3

REPORT INFORMATION
  Report Type: 
  Country: None (occurrence: None)
  Receive Date: 20110804
  Receipt Date: 20110725
  Transmission Date: 20111222
  Serious: Yes (Hospitalization)
  Sender: FDA-Public Use
  Company Number: CA-AMGEN-KDL394813

PATIENT
  Age: 58 Year
  Sex: Female
  Weight: 93.1 kg

DRUGS (14)
  1. CITALOPRAM [Concomitant]
  2. ATORVASTATIN CALCIUM [Concomitant]
  3. METHOTREXATE [Suspect]
     Dosage: UNK UNK, UNK
     Route: 048
     Dates: start: 20080520
  4. STATEX [Concomitant]
  5. ENBREL [Suspect]
     Indication: RHEUMATOID ARTHRITIS
     Dosage: UNK UNK, QWK
     Dates: start: 20090212
  6. FLUTICASONE/SALMETEROL [Concomitant]
  7. CLONIDINE [Concomitant]
  8. ACECLOFENAC [Concomitant]
  9. ALENDRONATE SODIUM [Concomitant]
  10. OXYBUTYNIN [Concomitant]
  11. SENNA CONCENTRATE [Concomitant]
  12. MORPHINE [Concomitant]
  13. ARAVA [Suspect]
     Dosage: UNK
     Dates: start: 20081028
  14. ANTIINFLAMMATORY AGENTS [Concomitant]

REACTIONS (2)
  - CHOLECYSTITIS INFECTIVE [None]
  - CHOLECYSTECTOMY [None]
